FAERS Safety Report 4285923-9 (Version None)
Quarter: 2004Q1

REPORT INFORMATION
  Report Type: 
  Country: None (occurrence: None)
  Receive Date: 20040205
  Receipt Date: 20040122
  Transmission Date: 20041129
  Serious: Yes (Other)
  Sender: FDA-Public Use
  Company Number: NL-GLAXOSMITHKLINE-B0321029A

PATIENT

DRUGS (2)
  1. PAROXETINE [Suspect]
  2. NO CONCURRENT MEDICATION [Concomitant]

REACTIONS (3)
  - MENTAL DISORDER [None]
  - MUSCULAR DYSTROPHY [None]
  - THROMBOSIS [None]
